FAERS Safety Report 13392258 (Version 1)
Quarter: 2017Q1

REPORT INFORMATION
  Report Type: Spontaneous
  Country: US (occurrence: US)
  Receive Date: 20170331
  Receipt Date: 20170331
  Transmission Date: 20170429
  Serious: No
  Sender: FDA-Public Use
  Company Number: US-MYLANLABS-2016M1034434

PATIENT
  Sex: Female

DRUGS (12)
  1. FENTANYL TRANSDERMAL SYSTEM [Suspect]
     Active Substance: FENTANYL
     Indication: BACK DISORDER
  2. DENOSUMAB [Concomitant]
     Active Substance: DENOSUMAB
     Dosage: UNK
  3. FENTANYL TRANSDERMAL SYSTEM [Suspect]
     Active Substance: FENTANYL
     Indication: OSTEOARTHRITIS
  4. NAPROXEN SODIUM. [Concomitant]
     Active Substance: NAPROXEN SODIUM
     Dosage: UNK
  5. GLUCOSAMINE [Concomitant]
     Active Substance: GLUCOSAMINE
     Dosage: UNK
  6. FENTANYL TRANSDERMAL SYSTEM [Suspect]
     Active Substance: FENTANYL
     Indication: PAIN
     Dosage: 50 ?G, QH, CHANGE Q72H
     Route: 062
     Dates: start: 2009
  7. FENTANYL TRANSDERMAL SYSTEM [Suspect]
     Active Substance: FENTANYL
     Indication: OSTEOPOROSIS
  8. CALCIUM [Concomitant]
     Active Substance: CALCIUM
     Dosage: UNK
  9. METOPROLOL TARTRATE. [Concomitant]
     Active Substance: METOPROLOL TARTRATE
     Dosage: UNK
  10. OMEPRAZOLE. [Concomitant]
     Active Substance: OMEPRAZOLE
     Dosage: UNK
  11. HYDROCODONE [Concomitant]
     Active Substance: HYDROCODONE
     Indication: BREAKTHROUGH PAIN
     Dosage: UNK
  12. DULOXETINE HYDROCHLORIDE. [Concomitant]
     Active Substance: DULOXETINE HYDROCHLORIDE
     Dosage: UNK

REACTIONS (2)
  - Drug effect decreased [Not Recovered/Not Resolved]
  - Withdrawal syndrome [Not Recovered/Not Resolved]

NARRATIVE: CASE EVENT DATE: 2016
